FAERS Safety Report 11520807 (Version 1)
Quarter: 2015Q3

REPORT INFORMATION
  Report Type: Spontaneous
  Country: US (occurrence: None)
  Receive Date: 20150917
  Receipt Date: 20150917
  Transmission Date: 20151125
  Serious: Yes (Disabling)
  Sender: FDA-Public Use
  Company Number: None

PATIENT
  Age: 43 Year
  Sex: Female
  Weight: 81.65 kg

DRUGS (1)
  1. CIPRO [Suspect]
     Active Substance: CIPROFLOXACIN HYDROCHLORIDE

REACTIONS (10)
  - Bedridden [None]
  - Ligament sprain [None]
  - Contusion [None]
  - Infection [None]
  - Viral infection [None]
  - Pain [None]
  - Immune system disorder [None]
  - Disability [None]
  - Tendon disorder [None]
  - Mitochondrial cytopathy [None]
